FAERS Safety Report 5777976-3 (Version None)
Quarter: 2008Q2

REPORT INFORMATION
  Report Type: 
  Country: None (occurrence: None)
  Receive Date: 20080617
  Receipt Date: 20080526
  Transmission Date: 20081010
  Serious: Yes (Other)
  Sender: FDA-Public Use
  Company Number: 08-155

PATIENT
  Age: 52 Year
  Sex: Female
  Weight: 65.7716 kg

DRUGS (25)
  1. CITRACAL 250+D. [Suspect]
     Indication: VITAMIN SUPPLEMENTATION
     Dosage: SEE IMAGE
     Route: 048
     Dates: start: 20010306, end: 20080101
  2. CITRACAL CITRATE PETITES, [Suspect]
     Indication: BONE DISORDER
     Dosage: 00 MG, DAILY; ORAL, 5 DF, DAILY, ORAL 750 MG, DAILY, ORAL, 1250 MG DAILY, ORAL
     Route: 048
     Dates: start: 20070101, end: 20070401
  3. CITRACAL CITRATE PETITES, [Suspect]
     Indication: BONE DISORDER
     Dosage: 00 MG, DAILY; ORAL, 5 DF, DAILY, ORAL 750 MG, DAILY, ORAL, 1250 MG DAILY, ORAL
     Route: 048
     Dates: start: 20070801, end: 20071001
  4. CITRACAL CITRATE PETITES, [Suspect]
     Indication: BONE DISORDER
     Dosage: 00 MG, DAILY; ORAL, 5 DF, DAILY, ORAL 750 MG, DAILY, ORAL, 1250 MG DAILY, ORAL
     Route: 048
     Dates: start: 20080201, end: 20080301
  5. CITRACAL CITRATE PETITES, [Suspect]
     Indication: BONE DISORDER
     Dosage: 00 MG, DAILY; ORAL, 5 DF, DAILY, ORAL 750 MG, DAILY, ORAL, 1250 MG DAILY, ORAL
     Route: 048
     Dates: start: 20080101
  6. CITRACAL + D [Suspect]
     Indication: BONE DISORDER
     Dosage: 945 MG, DAILY, ORAL; 945 MG, DAILY, ORAL; 1260 MG, DAILY, ORAL
     Route: 048
     Dates: start: 20071001, end: 20071101
  7. CITRACAL + D [Suspect]
     Indication: BONE DISORDER
     Dosage: 945 MG, DAILY, ORAL; 945 MG, DAILY, ORAL; 1260 MG, DAILY, ORAL
     Route: 048
     Dates: start: 20071101, end: 20071201
  8. CITRACAL + D [Suspect]
     Indication: BONE DISORDER
     Dosage: 945 MG, DAILY, ORAL; 945 MG, DAILY, ORAL; 1260 MG, DAILY, ORAL
     Route: 048
     Dates: start: 20071201, end: 20080201
  9. UTRADENSE CALCIUM CITRATE TABLETS [Suspect]
     Indication: BONE DISORDER
     Dosage: 2 DF, DAILY, ORAL, 400 MG, DAILY, ORAL, 400 MG, DAILY, ORAL; 400 MG, DAILY, ORAL
     Route: 048
     Dates: start: 20060501, end: 20060801
  10. UTRADENSE CALCIUM CITRATE TABLETS [Suspect]
     Indication: BONE DISORDER
     Dosage: 2 DF, DAILY, ORAL, 400 MG, DAILY, ORAL, 400 MG, DAILY, ORAL; 400 MG, DAILY, ORAL
     Route: 048
     Dates: start: 20061001, end: 20061201
  11. UTRADENSE CALCIUM CITRATE TABLETS [Suspect]
     Indication: BONE DISORDER
     Dosage: 2 DF, DAILY, ORAL, 400 MG, DAILY, ORAL, 400 MG, DAILY, ORAL; 400 MG, DAILY, ORAL
     Route: 048
     Dates: start: 20070401, end: 20070601
  12. UTRADENSE CALCIUM CITRATE TABLETS [Suspect]
     Indication: BONE DISORDER
     Dosage: 2 DF, DAILY, ORAL, 400 MG, DAILY, ORAL, 400 MG, DAILY, ORAL; 400 MG, DAILY, ORAL
     Route: 048
     Dates: start: 20060401, end: 20070601
  13. ALEVE [Suspect]
     Dosage: ORAL
     Route: 048
  14. SYNTHROID [Concomitant]
  15. KLOR-CON [Concomitant]
  16. IMITREX [Concomitant]
  17. NATURES BOUNTY CRANBERRY [Concomitant]
  18. NATURE MADE COMPLETE VITAMIN [Concomitant]
  19. NATURE MADE MAGNESIUM [Concomitant]
  20. IRON-THERAPY [Concomitant]
  21. VITAMIN E [Concomitant]
  22. ASCORBIC ACID [Concomitant]
  23. VITAMIN B-12 [Concomitant]
  24. VITAMIN B-12 [Concomitant]
  25. SALMON OIL, MAREZINE, SIMETHICONE [Concomitant]

REACTIONS (10)
  - BRONCHITIS [None]
  - CHEST DISCOMFORT [None]
  - DERMATITIS CONTACT [None]
  - DYSPNOEA [None]
  - FATIGUE [None]
  - ORAL CANDIDIASIS [None]
  - ORAL PAIN [None]
  - PULMONARY GRANULOMA [None]
  - THROAT TIGHTNESS [None]
  - URINARY BLADDER HAEMORRHAGE [None]
